FAERS Safety Report 7755057-7 (Version None)
Quarter: 2011Q3

REPORT INFORMATION
  Report Type: 
  Country: None (occurrence: None)
  Receive Date: 20110914
  Receipt Date: 20110829
  Transmission Date: 20111222
  Serious: Yes (Other)
  Sender: FDA-Public Use
  Company Number: DE-1187794

PATIENT
  Age: 31 Year
  Sex: Male

DRUGS (1)
  1. FLUORESCITE [Suspect]
     Dosage: INTRAVENOUS BOLUS
     Route: 040
     Dates: start: 20110801, end: 20110801

REACTIONS (2)
  - DRUG HYPERSENSITIVITY [None]
  - URTICARIA [None]
